FAERS Safety Report 9493648 (Version 2)
Quarter: 2013Q3

REPORT INFORMATION
  Report Type: Spontaneous
  Country: ZA (occurrence: ZA)
  Receive Date: 20130902
  Receipt Date: 20130902
  Transmission Date: 20140515
  Serious: Yes (Disabling)
  Sender: FDA-Public Use
  Company Number: ZA-JNJFOC-20130803945

PATIENT
  Age: 11 Year
  Sex: Female
  Weight: 32 kg

DRUGS (1)
  1. CONCERTA [Suspect]
     Indication: ATTENTION DEFICIT/HYPERACTIVITY DISORDER
     Route: 048
     Dates: start: 20130701, end: 20130724

REACTIONS (3)
  - Complex regional pain syndrome [Recovering/Resolving]
  - Pain in extremity [Unknown]
  - Anxiety [Unknown]
